FAERS Safety Report 4307501-5 (Version None)
Quarter: 2004Q1

REPORT INFORMATION
  Report Type: 
  Country: None (occurrence: None)
  Receive Date: 20040226
  Receipt Date: 20040218
  Transmission Date: 20041129
  Serious: Yes (Other)
  Sender: FDA-Public Use
  Company Number: 2004200390DE

PATIENT
  Age: 55 Year
  Sex: Male

DRUGS (2)
  1. ZYVOX [Suspect]
     Indication: BACTERAEMIA
     Dosage: UNK, UNK; IV
     Route: 042
  2. ZYVOX [Suspect]
     Dosage: UNK, UNK, ORAL
     Route: 048

REACTIONS (1)
  - CONVULSION [None]
